FAERS Safety Report 25847324 (Version 1)
Quarter: 2025Q3

REPORT INFORMATION
  Report Type: Spontaneous
  Country: US (occurrence: US)
  Receive Date: 20250925
  Receipt Date: 20250925
  Transmission Date: 20251020
  Serious: Yes (Hospitalization, Other)
  Sender: SANOFI AVENTIS
  Company Number: US-SA-2025SA284241

PATIENT
  Age: 74 Year
  Sex: Female

DRUGS (5)
  1. DUPIXENT [Suspect]
     Active Substance: DUPILUMAB
     Indication: Neurodermatitis
     Route: 058
     Dates: start: 202309, end: 202309
  2. DUPIXENT [Suspect]
     Active Substance: DUPILUMAB
     Indication: Pemphigoid
     Dosage: 300 MG, QOW
     Route: 058
     Dates: start: 2023
  3. SYNTHROID [Suspect]
     Active Substance: LEVOTHYROXINE SODIUM
  4. HYDROCORTISONE [Concomitant]
     Active Substance: HYDROCORTISONE
  5. PREDNISONE [Concomitant]
     Active Substance: PREDNISONE

REACTIONS (14)
  - Rib fracture [Unknown]
  - Pemphigoid [Not Recovered/Not Resolved]
  - Condition aggravated [Not Recovered/Not Resolved]
  - Drug ineffective [Not Recovered/Not Resolved]
  - Dry skin [Unknown]
  - Blister infected [Unknown]
  - Diplopia [Unknown]
  - Condition aggravated [Unknown]
  - Rotator cuff syndrome [Unknown]
  - Pain in extremity [Unknown]
  - Diarrhoea [Unknown]
  - Dizziness [Unknown]
  - Neurodermatitis [Not Recovered/Not Resolved]
  - Arthralgia [Unknown]

NARRATIVE: CASE EVENT DATE: 20250601
